FAERS Safety Report 24361118 (Version 1)
Quarter: 2024Q3

REPORT INFORMATION
  Report Type: Spontaneous
  Country: AT (occurrence: AT)
  Receive Date: 20240925
  Receipt Date: 20240925
  Transmission Date: 20241017
  Serious: Yes (Other)
  Sender: AMGEN
  Company Number: AT-AMGEN-AUTSP2024189007

PATIENT
  Age: 46 Year
  Sex: Male

DRUGS (1)
  1. ADALIMUMAB [Suspect]
     Active Substance: ADALIMUMAB
     Indication: Polychondritis
     Dosage: UNK
     Route: 065

REACTIONS (3)
  - Myelodysplastic syndrome [Unknown]
  - VEXAS syndrome [Unknown]
  - Off label use [Unknown]
